FAERS Safety Report 6605203-3 (Version None)
Quarter: 2010Q1

REPORT INFORMATION
  Report Type: 
  Country: None (occurrence: None)
  Receive Date: 20100226
  Receipt Date: 20100217
  Transmission Date: 20100710
  Serious: Yes (Hospitalization, Other)
  Sender: FDA-Public Use
  Company Number: IT-ABBOTT-09P-083-0606990-00

PATIENT
  Sex: Male

DRUGS (5)
  1. HUMIRA [Suspect]
     Indication: CROHN'S DISEASE
     Route: 058
  2. PERINDOPRIL [Concomitant]
     Indication: HYPERTENSION
     Dates: start: 19990101
  3. AMLODIPINE [Concomitant]
     Indication: HYPERTENSION
     Dates: start: 19990101
  4. ATORVASTATIN CALCIUM [Concomitant]
     Indication: CARDIOVASCULAR EVENT PROPHYLAXIS
     Dates: start: 19990101
  5. LANSOPRAZOLE [Concomitant]
     Indication: PEPTIC ULCER
     Dates: start: 20080601

REACTIONS (2)
  - HYPOCALCAEMIA [None]
  - HYPOKALAEMIA [None]
